FAERS Safety Report 19084125 (Version 4)
Quarter: 2021Q3

REPORT INFORMATION
  Report Type: Report from Study
  Country: US (occurrence: US)
  Receive Date: 20210401
  Receipt Date: 20210921
  Transmission Date: 20211014
  Serious: No
  Sender: FDA-Public Use
  Company Number: NVSC2021US071461

PATIENT
  Sex: Male

DRUGS (1)
  1. ENTRESTO [Suspect]
     Active Substance: SACUBITRIL\VALSARTAN
     Indication: CARDIAC FAILURE
     Dosage: 1 DF, BID (97/103 MG)
     Route: 048
     Dates: start: 202012

REACTIONS (4)
  - Lethargy [Recovering/Resolving]
  - Apathy [Unknown]
  - Feeling abnormal [Recovering/Resolving]
  - Decreased activity [Recovering/Resolving]
